FAERS Safety Report 18935152 (Version 3)
Quarter: 2021Q1

REPORT INFORMATION
  Report Type: Spontaneous
  Country: US (occurrence: US)
  Receive Date: 20210224
  Receipt Date: 20210309
  Transmission Date: 20210420
  Serious: Yes (Hospitalization)
  Sender: FDA-Public Use
  Company Number: US-BIOGEN-2021BI00968240

PATIENT
  Age: 55 Year
  Sex: Female

DRUGS (19)
  1. TYSABRI [Suspect]
     Active Substance: NATALIZUMAB
     Indication: MULTIPLE SCLEROSIS
     Dosage: INFUSED OVER 1 HOUR
     Route: 065
     Dates: start: 20131030, end: 202011
  2. BENADRYL [Concomitant]
     Active Substance: DIPHENHYDRAMINE HYDROCHLORIDE
     Indication: PRODUCT USED FOR UNKNOWN INDICATION
     Dosage: 25 MG IV X 1 PRIOR TO INFUSION
     Route: 042
     Dates: start: 20140522
  3. RITALIN [Concomitant]
     Active Substance: METHYLPHENIDATE HYDROCHLORIDE
     Indication: PRODUCT USED FOR UNKNOWN INDICATION
     Dosage: PO Q AM, MAY REPEAT AT NOON
     Route: 048
     Dates: start: 20150505
  4. SOLU?MEDROL [Concomitant]
     Active Substance: METHYLPREDNISOLONE SODIUM SUCCINATE
     Indication: PRODUCT USED FOR UNKNOWN INDICATION
     Dosage: IV PER DAY X 2 DAYS, INFUSE OVER 1.5?2 HOURS AS TOLERATED
     Route: 042
     Dates: start: 20150803
  5. OXYBUTYNIN CHLORIDE. [Concomitant]
     Active Substance: OXYBUTYNIN CHLORIDE
     Indication: PRODUCT USED FOR UNKNOWN INDICATION
     Dosage: 1 PO QD
     Route: 048
     Dates: start: 20200901
  6. IBUPROFEN. [Concomitant]
     Active Substance: IBUPROFEN
     Indication: PRODUCT USED FOR UNKNOWN INDICATION
     Dosage: 1 PO Q8HRS PRN
     Route: 048
     Dates: start: 20130906
  7. MAXALT [Concomitant]
     Active Substance: RIZATRIPTAN BENZOATE
     Indication: PRODUCT USED FOR UNKNOWN INDICATION
     Dosage: AT ONSET OF HA MAY REPEAT X1 IN 2 HRS, MAX 3/24HRS
     Route: 048
     Dates: start: 20200218
  8. TIZANIDINE HCL [Concomitant]
     Active Substance: TIZANIDINE HYDROCHLORIDE
     Indication: PRODUCT USED FOR UNKNOWN INDICATION
     Dosage: 1 PO BID
     Route: 048
     Dates: start: 20141024
  9. LYRICA [Concomitant]
     Active Substance: PREGABALIN
     Indication: BREAKTHROUGH PAIN
     Dosage: 1 PO TID
     Route: 048
     Dates: start: 20150813
  10. FLUTICASONE PROPIONATE. [Concomitant]
     Active Substance: FLUTICASONE PROPIONATE
     Indication: PRODUCT USED FOR UNKNOWN INDICATION
     Dosage: 2 SPRAYS IN EACH NOSTRIL QD
     Route: 045
     Dates: start: 20171205
  11. LYRICA [Concomitant]
     Active Substance: PREGABALIN
     Dosage: 1 PO TID
     Route: 048
     Dates: start: 20190805
  12. PEPCID [Concomitant]
     Active Substance: FAMOTIDINE
     Indication: PRODUCT USED FOR UNKNOWN INDICATION
     Dosage: 1 PO ONCE PER DAY
     Route: 048
     Dates: start: 20180619
  13. VALTREX [Concomitant]
     Active Substance: VALACYCLOVIR HYDROCHLORIDE
     Indication: PRODUCT USED FOR UNKNOWN INDICATION
     Dosage: 1 PO QD
     Route: 048
     Dates: start: 20141024
  14. CAMBIA [Concomitant]
     Active Substance: DICLOFENAC POTASSIUM
     Indication: PRODUCT USED FOR UNKNOWN INDICATION
     Dosage: PO AT ONSET OF HA QD
     Route: 048
     Dates: start: 20200218
  15. TYSABRI [Suspect]
     Active Substance: NATALIZUMAB
     Route: 042
     Dates: start: 20131030, end: 202011
  16. ZOFRAN ODT [Concomitant]
     Active Substance: ONDANSETRON HYDROCHLORIDE
     Indication: NAUSEA
     Dosage: 1/2 TO 1 FOR NAUSEA Q8 HOURS
     Route: 048
     Dates: start: 20140506
  17. PROVIGIL [Concomitant]
     Active Substance: MODAFINIL
     Indication: PRODUCT USED FOR UNKNOWN INDICATION
     Dosage: 1/2?1 PO QAM
     Route: 048
     Dates: start: 20200218
  18. SOLU?MEDROL [Concomitant]
     Active Substance: METHYLPREDNISOLONE SODIUM SUCCINATE
     Dosage: IV PER DAY X 2 DAYS, INFUSE OVER 1.5?2 HOURS AS TOLERATED
     Route: 042
     Dates: start: 20180313
  19. BUPROPION HCL ER [Concomitant]
     Active Substance: BUPROPION HYDROCHLORIDE
     Indication: PRODUCT USED FOR UNKNOWN INDICATION
     Dosage: TAKE 1 PILL PO DAILY
     Route: 048
     Dates: start: 20181113

REACTIONS (5)
  - Gastric disorder [Not Recovered/Not Resolved]
  - Gastrointestinal disorder [Not Recovered/Not Resolved]
  - Respiratory disorder [Not Recovered/Not Resolved]
  - COVID-19 [Not Recovered/Not Resolved]
  - Pneumonia [Unknown]

NARRATIVE: CASE EVENT DATE: 202011
